FAERS Safety Report 18710005 (Version 4)
Quarter: 2021Q2

REPORT INFORMATION
  Report Type: Spontaneous
  Country: JP (occurrence: JP)
  Receive Date: 20210107
  Receipt Date: 20210629
  Transmission Date: 20210717
  Serious: Yes (Hospitalization, Other)
  Sender: FDA-Public Use
  Company Number: JP-BRISTOL-MYERS SQUIBB COMPANY-BMS-2021-000740

PATIENT
  Age: 76 Year
  Sex: Male
  Weight: 69.9 kg

DRUGS (10)
  1. LOXOPROFEN [Concomitant]
     Active Substance: LOXOPROFEN
     Indication: PAIN
     Dosage: 500 MILLIGRAM, AS NEEDED
     Route: 048
     Dates: start: 20210330
  2. BISOPROLOL FUMARATE YOSHINDO [Concomitant]
     Indication: CORONARY ARTERY OCCLUSION
     Dosage: 2.5 MILLIGRAM, QD
     Route: 048
     Dates: start: 20160214
  3. ROSUVASTATIN OD [Concomitant]
     Indication: AORTIC ANEURYSM
     Dosage: 2.5 MILLIGRAM, QD
     Route: 048
     Dates: start: 20160214
  4. OPDIVO [Suspect]
     Active Substance: NIVOLUMAB
     Dosage: 240 MILLIGRAM
     Route: 041
     Dates: start: 20201222, end: 20210412
  5. ROSUVASTATIN OD [Concomitant]
     Indication: CORONARY ARTERY OCCLUSION
  6. FEBURIC [Concomitant]
     Active Substance: FEBUXOSTAT
     Indication: HYPERURICAEMIA
     Dosage: 20 MILLIGRAM, QD
     Route: 048
     Dates: start: 20160715
  7. KREMEZIN [Concomitant]
     Active Substance: ACTIVATED CHARCOAL
     Indication: CHRONIC KIDNEY DISEASE
     Dosage: 2 GRAM, Q12H
     Route: 048
     Dates: start: 20160225
  8. PLAVIX [Concomitant]
     Active Substance: CLOPIDOGREL BISULFATE
     Indication: CORONARY ARTERY OCCLUSION
     Dosage: 75 MILLIGRAM, QD
     Route: 048
     Dates: start: 20160214
  9. TAKECAB [Concomitant]
     Active Substance: VONOPRAZAN FUMARATE
     Indication: PROPHYLAXIS AGAINST GASTROINTESTINAL ULCER
     Dosage: 10 MILLIGRAM, QD
     Route: 048
     Dates: start: 20160214
  10. OPDIVO [Suspect]
     Active Substance: NIVOLUMAB
     Indication: METASTATIC RENAL CELL CARCINOMA
     Dosage: 240 MILLIGRAM
     Route: 041
     Dates: start: 20191210

REACTIONS (4)
  - Constipation [Not Recovered/Not Resolved]
  - Malignant neoplasm progression [Unknown]
  - Gastrointestinal haemorrhage [Recovered/Resolved]
  - Eczema [Not Recovered/Not Resolved]

NARRATIVE: CASE EVENT DATE: 20201110
